FAERS Safety Report 8985105 (Version 3)
Quarter: 2013Q1

REPORT INFORMATION
  Report Type: Spontaneous
  Country: BR (occurrence: BR)
  Receive Date: 20121226
  Receipt Date: 20130313
  Transmission Date: 20140127
  Serious: Yes (Hospitalization, Other)
  Sender: FDA-Public Use
  Company Number: PHHY2012BR118461

PATIENT
  Sex: Female
  Weight: 45 kg

DRUGS (5)
  1. EXJADE [Suspect]
     Indication: THALASSAEMIA BETA
     Dosage: 1750 MG (3 TABLETS OF 500MG AND 1 TABLET OF 250MG)
     Dates: start: 201001
  2. PREMARIN [Concomitant]
     Indication: HORMONE REPLACEMENT THERAPY
     Dosage: 0.625 MG, QD
     Route: 048
  3. FOLIC ACID [Concomitant]
     Dosage: 5 MG, QD
     Route: 048
  4. PURAN T4 [Concomitant]
     Indication: HYPOTHYROIDISM
     Dosage: 100 UG, QD
  5. ACETYLSALICYLIC ACID [Concomitant]
     Indication: BLOOD DISORDER
     Dosage: 5 MG, QD
     Route: 048
     Dates: start: 2009

REACTIONS (5)
  - Appendicitis [Recovered/Resolved]
  - Pain [Recovering/Resolving]
  - Postoperative wound infection [Recovered/Resolved]
  - Constipation [Recovered/Resolved]
  - Serum ferritin increased [Unknown]
